FAERS Safety Report 18405309 (Version 1)
Quarter: 2020Q4

REPORT INFORMATION
  Report Type: Spontaneous
  Country: FR (occurrence: FR)
  Receive Date: 20201020
  Receipt Date: 20201020
  Transmission Date: 20210114
  Serious: Yes (Disabling, Other)
  Sender: FDA-Public Use
  Company Number: FR-SA-2020SA294000

PATIENT

DRUGS (1)
  1. DUPIXENT [Suspect]
     Active Substance: DUPILUMAB
     Indication: DERMATITIS ATOPIC
     Dosage: UNK
     Dates: start: 2019

REACTIONS (14)
  - Fatigue [Unknown]
  - Blindness [Unknown]
  - Arthralgia [Unknown]
  - Conjunctivitis [Unknown]
  - Back pain [Unknown]
  - Muscle spasms [Unknown]
  - Paraesthesia [Unknown]
  - Hair growth abnormal [Unknown]
  - Asthenia [Unknown]
  - Alopecia [Unknown]
  - Weight increased [Unknown]
  - Paranoia [Recovering/Resolving]
  - Pruritus [Unknown]
  - Rash [Unknown]
